FAERS Safety Report 8355429 (Version 4)
Quarter: 2013Q1

REPORT INFORMATION
  Report Type: Spontaneous
  Country: US (occurrence: US)
  Receive Date: 20120126
  Receipt Date: 20130213
  Transmission Date: 20140127
  Serious: Yes (Hospitalization)
  Sender: FDA-Public Use
  Company Number: US-BAYER-2012-006447

PATIENT
  Age: 48 Year
  Sex: Female
  Weight: 140.14 kg

DRUGS (2)
  1. YAZ [Suspect]
     Dosage: UNK
     Dates: start: 20060926, end: 200803
  2. PROTONIX [Concomitant]
     Indication: PROPHYLAXIS

REACTIONS (3)
  - Cerebrovascular accident [None]
  - Injury [None]
  - Contraindication to medical treatment [None]
